FAERS Safety Report 6996995-2 (Version None)
Quarter: 2010Q3

REPORT INFORMATION
  Report Type: 
  Country: None (occurrence: None)
  Receive Date: 20100918
  Receipt Date: 20090831
  Transmission Date: 20110219
  Serious: No
  Sender: FDA-Public Use
  Company Number: US-WYE-H10774109

PATIENT
  Sex: Female
  Weight: 104.42 kg

DRUGS (10)
  1. PRISTIQ [Suspect]
     Indication: DEPRESSION
     Route: 048
     Dates: start: 20090821
  2. ATIVAN [Concomitant]
  3. PROTONIX [Concomitant]
  4. WELLBUTRIN [Concomitant]
  5. MULTIVIT [Concomitant]
  6. TRAZODONE HCL [Concomitant]
  7. ZOLOFT [Concomitant]
  8. OXYCONTIN [Interacting]
     Indication: BACK DISORDER
     Dates: start: 20090601, end: 20090830
  9. OXYCONTIN [Interacting]
     Indication: SURGERY
     Dates: start: 20090831
  10. PREMARIN [Concomitant]

REACTIONS (3)
  - DRUG INTERACTION [None]
  - DYSPHONIA [None]
  - TREMOR [None]
